FAERS Safety Report 6306216-1 (Version None)
Quarter: 2009Q3

REPORT INFORMATION
  Report Type: 
  Country: None (occurrence: None)
  Receive Date: 20090812
  Receipt Date: 20090807
  Transmission Date: 20100115
  Serious: Yes (Death, Other)
  Sender: FDA-Public Use
  Company Number: FR-CELGENEUS-056-50794-09061642

PATIENT
  Sex: Male
  Weight: 80 kg

DRUGS (3)
  1. VIDAZA [Suspect]
     Route: 058
     Dates: start: 20090401, end: 20090603
  2. EPO [Concomitant]
     Indication: DRUG USE FOR UNKNOWN INDICATION
     Route: 065
  3. TRANSFUSION OF PACKED RBC [Concomitant]
     Indication: DRUG USE FOR UNKNOWN INDICATION
     Route: 065

REACTIONS (3)
  - DEATH [None]
  - INJECTION SITE NECROSIS [None]
  - RENAL FAILURE [None]
